FAERS Safety Report 22387921 (Version 1)
Quarter: 2023Q2

REPORT INFORMATION
  Report Type: Report from Study
  Country: ES (occurrence: None)
  Receive Date: 20230531
  Receipt Date: 20230531
  Transmission Date: 20230722
  Serious: Yes (Other)
  Sender: FDA-Public Use
  Company Number: 2023A121648

PATIENT
  Age: 65 Year
  Sex: Female

DRUGS (1)
  1. TAGRISSO [Suspect]
     Active Substance: OSIMERTINIB
     Indication: Adenocarcinoma
     Route: 048

REACTIONS (5)
  - Transaminases increased [Unknown]
  - Central nervous system lesion [Unknown]
  - Toxicity to various agents [Unknown]
  - Fatigue [Unknown]
  - Diarrhoea [Unknown]
